FAERS Safety Report 24699681 (Version 1)
Quarter: 2024Q4

REPORT INFORMATION
  Report Type: Report from Study
  Country: GB (occurrence: GB)
  Receive Date: 20241205
  Receipt Date: 20241205
  Transmission Date: 20250114
  Serious: Yes (Other)
  Sender: CELLTRION
  Company Number: GB-CELLTRION INC.-2024GB027695

PATIENT

DRUGS (2)
  1. INFLIXIMAB-DYYB [Suspect]
     Active Substance: INFLIXIMAB-DYYB
     Indication: Crohn^s disease
     Dosage: 120 MG
     Route: 058
     Dates: start: 202407
  2. INFLIXIMAB-DYYB [Suspect]
     Active Substance: INFLIXIMAB-DYYB
     Dosage: PRE FILLED PEN PK2 120MG
     Route: 058
     Dates: start: 202409

REACTIONS (4)
  - Back pain [Unknown]
  - Proctalgia [Unknown]
  - Anal pruritus [Unknown]
  - Insomnia [Unknown]
